FAERS Safety Report 9106131 (Version 3)
Quarter: 2014Q1

REPORT INFORMATION
  Report Type: Spontaneous
  Country: US (occurrence: US)
  Receive Date: 20130221
  Receipt Date: 20140312
  Transmission Date: 20141002
  Serious: No
  Sender: FDA-Public Use
  Company Number: US-009507513-1302USA008735

PATIENT
  Age: 39 Year
  Sex: Female

DRUGS (6)
  1. PEGINTRON [Suspect]
     Indication: POLYCYTHAEMIA VERA
     Dosage: 50 MCG/0.5 ML, INJECTION, ONCE WEEKLY
     Dates: start: 20130113
  2. CYMBALTA [Concomitant]
  3. GABAPENTIN [Concomitant]
  4. ASPIRIN [Concomitant]
  5. AMITRIPTYLINE HYDROCHLORIDE [Concomitant]
  6. TOPIRAMATE [Concomitant]

REACTIONS (6)
  - Bone pain [Recovering/Resolving]
  - Influenza like illness [Recovering/Resolving]
  - Platelet count decreased [Recovering/Resolving]
  - Haematocrit decreased [Recovering/Resolving]
  - Malaise [Not Recovered/Not Resolved]
  - Poor quality drug administered [Unknown]
